FAERS Safety Report 16363560 (Version 1)
Quarter: 2019Q2

REPORT INFORMATION
  Report Type: Report from Study
  Country: US (occurrence: US)
  Receive Date: 20190528
  Receipt Date: 20190528
  Transmission Date: 20190711
  Serious: Yes (Hospitalization)
  Sender: FDA-Public Use
  Company Number: US-JNJFOC-20190529486

PATIENT
  Age: 17 Year
  Sex: Male
  Weight: 63 kg

DRUGS (4)
  1. REMICADE [Suspect]
     Active Substance: INFLIXIMAB
     Indication: INFLAMMATORY BOWEL DISEASE
     Route: 042
     Dates: start: 20130927
  2. VITAMIN E [Concomitant]
     Active Substance: .ALPHA.-TOCOPHEROL
     Route: 065
  3. VIT D [Concomitant]
     Active Substance: VITAMIN D NOS
     Route: 065
  4. ACCUTANE [Concomitant]
     Active Substance: ISOTRETINOIN
     Route: 065

REACTIONS (1)
  - Acne pustular [Recovered/Resolved]

NARRATIVE: CASE EVENT DATE: 20190409
